FAERS Safety Report 7890977 (Version 8)
Quarter: 2013Q3

REPORT INFORMATION
  Report Type: Report from Study
  Country: JP (occurrence: JP)
  Receive Date: 20110408
  Receipt Date: 20130807
  Transmission Date: 20140515
  Serious: Yes (Death, Hospitalization, Other)
  Sender: FDA-Public Use
  Company Number: JP-BRISTOL-MYERS SQUIBB COMPANY-15651169

PATIENT
  Age: 61 Year
  Sex: Female

DRUGS (17)
  1. ORENCIA [Suspect]
     Indication: RHEUMATOID ARTHRITIS
     Dosage: 27NOV,11DEC10,8JAN,12FEB,12MAR11 LAST DOSE ON 12MAR2011
     Route: 041
     Dates: start: 20101113
  2. METHOTREXATE [Suspect]
     Indication: RHEUMATOID ARTHRITIS
     Dates: end: 20110328
  3. PREDNISONE [Suspect]
     Indication: RHEUMATOID ARTHRITIS
     Dosage: 3 MONTHS BEFORE STARTED-
     Route: 048
     Dates: end: 20110328
  4. ACTONEL [Concomitant]
  5. FOLIAMIN [Concomitant]
     Indication: PROPHYLAXIS
  6. LIVALO [Concomitant]
     Indication: HYPERLIPIDAEMIA
  7. SIGMART [Concomitant]
     Indication: ANGINA PECTORIS
  8. ITOROL [Concomitant]
     Indication: ANGINA PECTORIS
  9. MICARDIS [Concomitant]
     Indication: HYPERTENSION
  10. FRANDOL TAPE S [Concomitant]
     Indication: ANGINA PECTORIS
  11. SOLU-MEDROL [Concomitant]
     Route: 048
     Dates: start: 20110313, end: 20110314
  12. RINDERON [Concomitant]
     Dosage: 16MG/DAY(15MAR2011-16MAR2011?8MG/DAY(17MAR2011-ONGOING
     Route: 048
     Dates: start: 20110315
  13. SODIUM CHLORIDE [Concomitant]
  14. NAUZELIN [Concomitant]
  15. GANCICLOVIR [Concomitant]
  16. DEXAMETHASONE [Concomitant]
  17. IMMUNE GLOBULIN [Concomitant]

REACTIONS (13)
  - Acute disseminated encephalomyelitis [Fatal]
  - Cytomegalovirus chorioretinitis [Fatal]
  - Fungal infection [Fatal]
  - Sepsis [Fatal]
  - Blindness [Unknown]
  - Pneumonia [Unknown]
  - Herpes zoster [Unknown]
  - Epstein-Barr virus infection [Unknown]
  - Lymphopenia [Unknown]
  - Dislocation of vertebra [Unknown]
  - White blood cell count increased [Unknown]
  - Blood sodium decreased [Unknown]
  - C-reactive protein increased [Unknown]
